FAERS Safety Report 13734606 (Version 1)
Quarter: 2017Q3

REPORT INFORMATION
  Report Type: Spontaneous
  Country: US (occurrence: US)
  Receive Date: 20170707
  Receipt Date: 20170707
  Transmission Date: 20171127
  Serious: Yes (Hospitalization)
  Sender: FDA-Public Use
  Company Number: None

PATIENT
  Age: 80 Year
  Sex: Female

DRUGS (1)
  1. NEULASTA [Suspect]
     Active Substance: PEGFILGRASTIM
     Indication: NEOPLASM MALIGNANT
     Dosage: 6MG/0.6ML EVERY 3 WEEKS SUB-Q
     Route: 058
     Dates: start: 20170502

REACTIONS (1)
  - Pneumonitis [None]

NARRATIVE: CASE EVENT DATE: 201707
